FAERS Safety Report 19867279 (Version 1)
Quarter: 2021Q3

REPORT INFORMATION
  Report Type: Report from Study
  Country: DE (occurrence: DE)
  Receive Date: 20210921
  Receipt Date: 20210921
  Transmission Date: 20211014
  Serious: Yes (Hospitalization)
  Sender: FDA-Public Use
  Company Number: DE-MYLANLABS-2021M1063539

PATIENT
  Sex: Female
  Weight: 52 kg

DRUGS (1)
  1. PEGFILGRASTIM [Suspect]
     Active Substance: PEGFILGRASTIM
     Indication: PRODUCT USED FOR UNKNOWN INDICATION
     Dosage: 6 MILLIGRAM, QD
     Route: 058
     Dates: start: 20210322, end: 20210322

REACTIONS (2)
  - Implantation complication [Not Recovered/Not Resolved]
  - Procedural pneumothorax [Not Recovered/Not Resolved]

NARRATIVE: CASE EVENT DATE: 20210324
